FAERS Safety Report 8581310-3 (Version None)
Quarter: 2012Q3

REPORT INFORMATION
  Report Type: 
  Country: None (occurrence: None)
  Receive Date: 20120809
  Receipt Date: 20120807
  Transmission Date: 20120928
  Serious: Yes (Other)
  Sender: FDA-Public Use
  Company Number: PHHY2012DO068452

PATIENT
  Sex: Male

DRUGS (3)
  1. MEMANTINE HCL [Concomitant]
  2. Q10 [Concomitant]
     Dosage: UNK
  3. EXELON [Suspect]
     Route: 062

REACTIONS (1)
  - THROMBOCYTOPENIA [None]
